FAERS Safety Report 4701120-4 (Version None)
Quarter: 2005Q2

REPORT INFORMATION
  Report Type: 
  Country: None (occurrence: None)
  Receive Date: 20050624
  Receipt Date: 20050614
  Transmission Date: 20051028
  Serious: Yes (Other)
  Sender: FDA-Public Use
  Company Number: B0384392A

PATIENT
  Age: 35 Year
  Sex: Female

DRUGS (9)
  1. ZANTAC [Suspect]
     Indication: PREMEDICATION
  2. METOCLOPRAMIDE [Suspect]
     Indication: PREMEDICATION
  3. REMIFENTANIL HCL [Suspect]
     Indication: ANAESTHESIA
  4. CEFAZOLIN [Suspect]
     Indication: ANAESTHESIA
  5. MIDAZOLAM HCL [Suspect]
     Indication: ANAESTHESIA
  6. PROPOFOL [Suspect]
     Indication: ANAESTHESIA
  7. ROCURONIUM BROMIDE                       (ROCURONIUM BROMIDE) [Suspect]
     Indication: ANAESTHESIA
  8. SEVOFLURANE [Suspect]
     Indication: ANAESTHESIA
  9. TEMAZEPAM [Suspect]
     Indication: PREMEDICATION

REACTIONS (8)
  - ACTIVATED PARTIAL THROMBOPLASTIN TIME PROLONGED [None]
  - ANAPHYLACTIC REACTION [None]
  - BLOOD PRESSURE DECREASED [None]
  - DRUG INEFFECTIVE [None]
  - ERYTHEMA [None]
  - FIBRINOLYSIS [None]
  - HEART RATE INCREASED [None]
  - HYPERCOAGULATION [None]
